FAERS Safety Report 13921080 (Version 1)
Quarter: 2017Q3

REPORT INFORMATION
  Report Type: Spontaneous
  Country: US (occurrence: US)
  Receive Date: 20170830
  Receipt Date: 20170830
  Transmission Date: 20171127
  Serious: Yes (Hospitalization, Other)
  Sender: FDA-Public Use
  Company Number: US-ALEMBIC PHARMACUETICALS LIMITED-2017SCAL000699

PATIENT

DRUGS (2)
  1. LINEZOLID. [Suspect]
     Active Substance: LINEZOLID
     Indication: CELLULITIS STAPHYLOCOCCAL
     Dosage: UNK
  2. WARFARIN [Suspect]
     Active Substance: WARFARIN
     Indication: EMBOLISM VENOUS
     Dosage: UNK

REACTIONS (9)
  - Anticoagulation drug level above therapeutic [Recovered/Resolved]
  - Lactic acidosis [Unknown]
  - Hypoglycaemia [Recovered/Resolved]
  - Somnolence [Unknown]
  - Thrombocytopenia [Recovered/Resolved]
  - Septic shock [Recovering/Resolving]
  - Decreased appetite [Unknown]
  - Transaminases abnormal [Recovered/Resolved]
  - Malaise [Unknown]
